FAERS Safety Report 8475577-X (Version None)
Quarter: 2012Q2

REPORT INFORMATION
  Report Type: 
  Country: None (occurrence: None)
  Receive Date: 20120628
  Receipt Date: 20120623
  Transmission Date: 20120825
  Serious: Yes (Death)
  Sender: FDA-Public Use
  Company Number: PHHY2012IN053853

PATIENT
  Age: 48 Year
  Sex: Male

DRUGS (1)
  1. SEBIVO [Suspect]
     Indication: HEPATITIS
     Dosage: 600 MG, UNK
     Route: 048
     Dates: start: 20120410

REACTIONS (1)
  - HEPATIC FAILURE [None]
